FAERS Safety Report 19202332 (Version 1)
Quarter: 2021Q2

REPORT INFORMATION
  Report Type: Spontaneous
  Country: IN (occurrence: IN)
  Receive Date: 20210430
  Receipt Date: 20210430
  Transmission Date: 20210717
  Serious: Yes (Life-Threatening, Hospitalization, Other)
  Sender: FDA-Public Use
  Company Number: IN-PURDUE-USA-2021-0252534

PATIENT
  Age: 30 Year
  Sex: Male

DRUGS (1)
  1. NON?PMN MORPHINE SULFATE [Suspect]
     Active Substance: MORPHINE SULFATE
     Indication: PRODUCT USED FOR UNKNOWN INDICATION
     Dosage: UNK
     Route: 065

REACTIONS (11)
  - Toxicity to various agents [Unknown]
  - Miosis [Recovering/Resolving]
  - Stupor [Recovered/Resolved]
  - Loss of consciousness [Recovered/Resolved]
  - Respiratory depression [Unknown]
  - Rales [Unknown]
  - Dyspnoea [Unknown]
  - Lactic acidosis [Recovering/Resolving]
  - Areflexia [Recovering/Resolving]
  - Foreign body in gastrointestinal tract [Recovered/Resolved]
  - Respiratory acidosis [Recovering/Resolving]
